FAERS Safety Report 6860492-5 (Version None)
Quarter: 2010Q3

REPORT INFORMATION
  Report Type: 
  Country: None (occurrence: None)
  Receive Date: 20100720
  Receipt Date: 20100630
  Transmission Date: 20110219
  Serious: Yes (Hospitalization)
  Sender: FDA-Public Use
  Company Number: A0865616A

PATIENT
  Age: 60 Year
  Sex: Male
  Weight: 111.8 kg

DRUGS (9)
  1. AVANDIA [Suspect]
     Dosage: 4MG PER DAY
     Route: 048
     Dates: start: 20011001
  2. ACCUPRIL [Concomitant]
  3. AMARYL [Concomitant]
  4. NORVASC [Concomitant]
  5. ZOCOR [Concomitant]
  6. HYDRALAZINE HCL [Concomitant]
  7. DYAZIDE [Concomitant]
  8. FLOMAX [Concomitant]
  9. PROSCAR [Concomitant]

REACTIONS (2)
  - CARDIAC FAILURE CONGESTIVE [None]
  - MYOCARDIAL INFARCTION [None]
